FAERS Safety Report 7248445-9 (Version None)
Quarter: 2011Q1

REPORT INFORMATION
  Report Type: 
  Country: None (occurrence: None)
  Receive Date: 20110127
  Receipt Date: 20110124
  Transmission Date: 20110831
  Serious: Yes (Other)
  Sender: FDA-Public Use
  Company Number: US-ELI_LILLY_AND_COMPANY-US201011003687

PATIENT
  Sex: Male
  Weight: 122.45 kg

DRUGS (7)
  1. BYETTA [Suspect]
     Dosage: 10 UG, 2/D
     Route: 058
     Dates: start: 20101022, end: 20101023
  2. LEVEMIR [Concomitant]
     Indication: TYPE 2 DIABETES MELLITUS
     Dosage: 40 UNITS QD BEFORE BREAKFAST
     Route: 058
     Dates: start: 20100401
  3. LEVEMIR [Concomitant]
     Dosage: 10 UNITS BEFORE BREAKFAST DAILY
  4. BYETTA [Suspect]
     Indication: TYPE 2 DIABETES MELLITUS
     Dosage: 5 UG, 4/D
     Route: 058
     Dates: start: 20100401
  5. BYETTA [Suspect]
     Dosage: 5 UG, 2/D
     Route: 058
  6. BYETTA [Suspect]
     Dosage: 10 UG, DAILY (1/D)
     Route: 058
  7. METFORMIN [Concomitant]
     Indication: TYPE 2 DIABETES MELLITUS
     Route: 048
     Dates: start: 20100401

REACTIONS (6)
  - GLYCOSYLATED HAEMOGLOBIN INCREASED [None]
  - OFF LABEL USE [None]
  - BLOOD GLUCOSE INCREASED [None]
  - WEIGHT INCREASED [None]
  - HYPERTENSION [None]
  - RENAL IMPAIRMENT [None]
